FAERS Safety Report 14068170 (Version 1)
Quarter: 2017Q4

REPORT INFORMATION
  Report Type: Spontaneous
  Country: US (occurrence: US)
  Receive Date: 20171009
  Receipt Date: 20171009
  Transmission Date: 20180321
  Serious: Yes (Life-Threatening, Hospitalization)
  Sender: FDA-Public Use
  Company Number: None

PATIENT
  Age: 41 Year
  Sex: Female
  Weight: 137.5 kg

DRUGS (1)
  1. PRALATREXATE [Suspect]
     Active Substance: PRALATREXATE
     Indication: PERIPHERAL T-CELL LYMPHOMA UNSPECIFIED
     Dates: start: 20170926

REACTIONS (4)
  - Stevens-Johnson syndrome [None]
  - Blister [None]
  - Skin exfoliation [None]
  - Secretion discharge [None]

NARRATIVE: CASE EVENT DATE: 20170926
